FAERS Safety Report 8817001 (Version 1)
Quarter: 2012Q4

REPORT INFORMATION
  Report Type: Spontaneous
  Country: US (occurrence: None)
  Receive Date: 20121003
  Receipt Date: 20121003
  Transmission Date: 20130627
  Serious: Yes (Hospitalization)
  Sender: FDA-Public Use
  Company Number: None

PATIENT
  Age: 92 Year
  Sex: Male
  Weight: 119.3 kg

DRUGS (2)
  1. DEXAMETHASONE [Suspect]
     Indication: PROPHYLAXIS OF NAUSEA AND VOMITING
     Dosage: ~09/22/2012  start date given is greater then end date of use
     Dates: end: 20120514
  2. DEXAMETHASONE [Suspect]
     Indication: CHEMOTHERAPY
     Dosage: ~09/22/2012  start date given is greater then end date of use
     Dates: end: 20120514

REACTIONS (1)
  - Gastrointestinal haemorrhage [None]
